FAERS Safety Report 8212730-4 (Version None)
Quarter: 2012Q1

REPORT INFORMATION
  Report Type: 
  Country: None (occurrence: None)
  Receive Date: 20120315
  Receipt Date: 20120307
  Transmission Date: 20120608
  Serious: Yes (Hospitalization)
  Sender: FDA-Public Use
  Company Number: US-MERCK-1203USA00977

PATIENT

DRUGS (3)
  1. ZOCOR [Suspect]
     Dosage: HIGH DOSE
     Route: 048
  2. DILTIAZEM HYDROCHLORIDE [Concomitant]
     Route: 042
  3. ZOCOR [Suspect]
     Dosage: HIGH DOSE
     Route: 048

REACTIONS (1)
  - ADVERSE EVENT [None]
